FAERS Safety Report 7398033-9 (Version None)
Quarter: 2011Q2

REPORT INFORMATION
  Report Type: 
  Country: None (occurrence: None)
  Receive Date: 20110406
  Receipt Date: 20110402
  Transmission Date: 20111010
  Serious: Yes (Other)
  Sender: FDA-Public Use
  Company Number: US-PFIZER INC-2011073395

PATIENT
  Sex: Female
  Weight: 40.816 kg

DRUGS (11)
  1. ACETAMINOPHEN [Concomitant]
     Indication: OSTEOARTHRITIS
     Dosage: 650 MG, 4X/DAY
     Route: 048
  2. VITAMIN D [Concomitant]
     Dosage: 1000 IU, 1X/DAY
     Route: 048
  3. LYRICA [Suspect]
     Indication: SPINAL COLUMN STENOSIS
     Dosage: 50MG DAILY
     Route: 048
     Dates: start: 20110101, end: 20110301
  4. LYRICA [Suspect]
     Dosage: 100MG DAILY
     Route: 048
     Dates: start: 20110301
  5. OXYCODONE [Concomitant]
     Indication: PAIN
     Dosage: 20 MG, 3X/DAY
     Route: 048
  6. LISINOPRIL [Concomitant]
     Indication: BLOOD PRESSURE ABNORMAL
     Dosage: 40 MG, 1X/DAY
     Route: 048
  7. SENOKOT [Concomitant]
     Indication: FAECES HARD
     Dosage: UNK
     Route: 048
  8. SIMVASTATIN/NIACIN [Concomitant]
     Dosage: UNK
     Route: 048
  9. LOVASTATIN [Concomitant]
     Indication: BLOOD CHOLESTEROL ABNORMAL
     Dosage: 20 MG, 1X/DAY
     Route: 048
  10. CENTRUM SILVER [Concomitant]
     Dosage: UNK
     Route: 048
  11. MULTI-VITAMINS [Concomitant]
     Dosage: UNK
     Route: 048

REACTIONS (2)
  - PAIN [None]
  - BLISTER [None]
